FAERS Safety Report 5871461-6 (Version None)
Quarter: 2008Q3

REPORT INFORMATION
  Report Type: 
  Country: None (occurrence: None)
  Receive Date: 20080905
  Receipt Date: 20080204
  Transmission Date: 20090109
  Serious: No
  Sender: FDA-Public Use
  Company Number: A0707186A

PATIENT
  Age: 59 Year
  Sex: Male

DRUGS (2)
  1. REQUIP [Suspect]
     Indication: RESTLESS LEGS SYNDROME
     Route: 048
     Dates: start: 20080123
  2. OTHER MEDICATIONS [Concomitant]

REACTIONS (3)
  - ARTHRALGIA [None]
  - DRY EYE [None]
  - DRY MOUTH [None]
